FAERS Safety Report 9528702 (Version 1)
Quarter: 2013Q3

REPORT INFORMATION
  Report Type: Spontaneous
  Country: US (occurrence: US)
  Receive Date: 20130917
  Receipt Date: 20130917
  Transmission Date: 20140515
  Serious: Yes (Hospitalization)
  Sender: FDA-Public Use
  Company Number: US-ASTRAZENECA-2013SE68092

PATIENT
  Age: 63 Year
  Sex: Male
  Weight: 88.5 kg

DRUGS (6)
  1. NEXIUM [Suspect]
     Indication: GASTROOESOPHAGEAL REFLUX DISEASE
     Route: 048
  2. NEXIUM [Suspect]
     Indication: GASTROOESOPHAGEAL REFLUX DISEASE
     Dosage: GENERIC
  3. HEART MEDICATIONS [Concomitant]
  4. CHOLESTEROL MEDICATIONS [Concomitant]
  5. LYRICA [Concomitant]
  6. CARSOPRODOL [Concomitant]

REACTIONS (12)
  - Epigastric discomfort [Unknown]
  - Dyspepsia [Unknown]
  - Gastrooesophageal reflux disease [Unknown]
  - Oesophageal disorder [Unknown]
  - Dysphonia [Unknown]
  - Nervous system disorder [Unknown]
  - Intervertebral disc degeneration [Unknown]
  - Fall [Unknown]
  - Back injury [Unknown]
  - Gait disturbance [Unknown]
  - Intentional drug misuse [Unknown]
  - Drug ineffective [Unknown]
